FAERS Safety Report 15789569 (Version 1)
Quarter: 2019Q1

REPORT INFORMATION
  Report Type: Spontaneous
  Country: US (occurrence: US)
  Receive Date: 20190103
  Receipt Date: 20190103
  Transmission Date: 20190417
  Serious: Yes (Other)
  Sender: FDA-Public Use
  Company Number: None

PATIENT
  Age: 69 Year
  Sex: Female
  Weight: 77.4 kg

DRUGS (22)
  1. FENOFIBRATE. [Concomitant]
     Active Substance: FENOFIBRATE
  2. VENTOLIN HFA [Concomitant]
     Active Substance: ALBUTEROL SULFATE
  3. COENZYME Q10 [Concomitant]
     Active Substance: UBIDECARENONE
  4. N-ACETYL-CYSTEINE [Concomitant]
  5. BABY ASPIRIN [Concomitant]
     Active Substance: ASPIRIN
  6. IRBESARTAN TABLETS, USP 300 MG [Suspect]
     Active Substance: IRBESARTAN
     Indication: HYPERTENSION
     Dosage: ?          QUANTITY:1 TABLET(S);?
     Route: 048
     Dates: start: 20151225, end: 20160101
  7. HYDROCHLORATHIAZIDE [Concomitant]
     Active Substance: HYDROCHLOROTHIAZIDE
  8. SYMBICORT [Concomitant]
     Active Substance: BUDESONIDE\FORMOTEROL FUMARATE DIHYDRATE
  9. VASCEPA [Concomitant]
     Active Substance: ICOSAPENT ETHYL
  10. MEMBRIN [Concomitant]
  11. NIACIN. [Concomitant]
     Active Substance: NIACIN
  12. DGL PLUS [Concomitant]
  13. S-ACETYL GLUTATHIONE [Concomitant]
  14. LOSARTAN. [Concomitant]
     Active Substance: LOSARTAN
  15. BI-PAP [Concomitant]
     Active Substance: DEVICE
  16. MULTI-VITAMIN W/ MINERALS [Concomitant]
  17. MAGNESIUM [Concomitant]
     Active Substance: MAGNESIUM
  18. ALPHA LIPOIC ACID [Concomitant]
     Active Substance: .ALPHA.-LIPOIC ACID
  19. 5-MTHF (BIOACTIVE FOLATE) [Concomitant]
  20. ZOLPIDEM [Concomitant]
     Active Substance: ZOLPIDEM\ZOLPIDEM TARTRATE
  21. VITAMIN E [Concomitant]
     Active Substance: .ALPHA.-TOCOPHEROL
  22. VITAMIN B12 [Concomitant]
     Active Substance: CYANOCOBALAMIN

REACTIONS (5)
  - Product substitution issue [None]
  - Drug ineffective [None]
  - Unevaluable event [None]
  - Loss of personal independence in daily activities [None]
  - Tension [None]

NARRATIVE: CASE EVENT DATE: 20151225
